FAERS Safety Report 16674632 (Version 1)
Quarter: 2019Q3

REPORT INFORMATION
  Report Type: Spontaneous
  Country: JP (occurrence: JP)
  Receive Date: 20190806
  Receipt Date: 20190806
  Transmission Date: 20191004
  Serious: Yes (Hospitalization, Other)
  Sender: FDA-Public Use
  Company Number: JP-UCBSA-2019032451

PATIENT
  Age: 24 Year
  Sex: Female
  Weight: 40.3 kg

DRUGS (17)
  1. PERAMPANEL [Concomitant]
     Active Substance: PERAMPANEL
     Route: 048
  2. ISONIAZID CALCIUM PYRUVINATE [Concomitant]
     Indication: MELAS SYNDROME
     Route: 048
  3. L-ARGININE HYDROCHLORIDE [Concomitant]
     Indication: MELAS SYNDROME
     Route: 048
  4. ASCORBIC ACID. [Concomitant]
     Active Substance: ASCORBIC ACID
     Indication: MELAS SYNDROME
     Route: 048
  5. E KEPPRA [Suspect]
     Active Substance: LEVETIRACETAM
     Indication: EPILEPSY
     Dosage: 3000 MG DAILY
     Route: 048
  6. VIMPAT [Suspect]
     Active Substance: LACOSAMIDE
     Indication: EPILEPSY
     Dosage: 200 MG DAILY
     Route: 048
  7. CARBAMAZEPINE. [Concomitant]
     Active Substance: CARBAMAZEPINE
     Indication: EPILEPSY
     Route: 048
  8. LEVOCARNITINE. [Concomitant]
     Active Substance: LEVOCARNITINE
     Indication: MELAS SYNDROME
     Route: 048
  9. VIMPAT [Suspect]
     Active Substance: LACOSAMIDE
     Dosage: 300 MG DAILY
     Route: 048
  10. RIBOFLAVIN BUTYRATE [Concomitant]
     Indication: MELAS SYNDROME
     Route: 048
  11. PERAMPANEL [Concomitant]
     Active Substance: PERAMPANEL
     Indication: EPILEPSY
     Route: 048
  12. E KEPPRA [Suspect]
     Active Substance: LEVETIRACETAM
     Dosage: 1500 MG DAILY
     Route: 048
  13. E KEPPRA [Suspect]
     Active Substance: LEVETIRACETAM
     Dosage: 1000 MG DAILY
     Route: 048
  14. VIMPAT [Suspect]
     Active Substance: LACOSAMIDE
     Dosage: 400MG DAILY
     Route: 048
  15. TOCOPHERYL NICOTINATE [Concomitant]
     Active Substance: TOCOPHERYL NICOTINATE, D-.ALPHA.
     Indication: MELAS SYNDROME
     Route: 048
  16. CARBAMAZEPINE. [Concomitant]
     Active Substance: CARBAMAZEPINE
     Route: 048
  17. UBIDECARENONE [Concomitant]
     Active Substance: UBIDECARENONE
     Indication: MELAS SYNDROME
     Route: 048

REACTIONS (10)
  - Diet refusal [Recovering/Resolving]
  - Influenza [Unknown]
  - Nausea [Unknown]
  - Rhabdomyolysis [Unknown]
  - Delusion [Recovering/Resolving]
  - Status epilepticus [Unknown]
  - Tachypnoea [Unknown]
  - Hallucination [Recovering/Resolving]
  - Myoclonus [Unknown]
  - Eating disorder [Unknown]
